FAERS Safety Report 17480902 (Version 1)
Quarter: 2020Q1

REPORT INFORMATION
  Report Type: Spontaneous
  Country: FR (occurrence: FR)
  Receive Date: 20200302
  Receipt Date: 20200302
  Transmission Date: 20200409
  Serious: Yes (Hospitalization)
  Sender: FDA-Public Use
  Company Number: FR-TEVA-2020-FR-1192950

PATIENT
  Age: 60 Year
  Sex: Female

DRUGS (6)
  1. ZOMIGORO 2,5 MG, COMPRIM? ORODISPERSIBLE [Suspect]
     Active Substance: ZOLMITRIPTAN
     Indication: MIGRAINE
     Dosage: 2.5 MG
     Route: 048
  2. PURSENNIDE (SENNA ALEXANDRINA LEAF) [Suspect]
     Active Substance: SENNA LEAF
     Indication: CONSTIPATION
     Dosage: 20 MG
     Route: 048
  3. CYMBALTA [Suspect]
     Active Substance: DULOXETINE HYDROCHLORIDE
     Indication: DEPRESSION
     Dosage: 30 MG
     Route: 048
  4. XYZALL [Concomitant]
     Active Substance: LEVOCETIRIZINE DIHYDROCHLORIDE
  5. VERAPAMIL [Suspect]
     Active Substance: VERAPAMIL HYDROCHLORIDE
     Indication: TACHYCARDIA
     Dosage: 40 MG
     Route: 048
  6. XANAX [Suspect]
     Active Substance: ALPRAZOLAM
     Indication: ANXIETY
     Dosage: 0.25 MG
     Route: 048

REACTIONS (2)
  - Pruritus [Recovering/Resolving]
  - Burning sensation [Recovering/Resolving]

NARRATIVE: CASE EVENT DATE: 201902
